FAERS Safety Report 8182711-8 (Version None)
Quarter: 2012Q1

REPORT INFORMATION
  Report Type: 
  Country: None (occurrence: None)
  Receive Date: 20120301
  Receipt Date: 20120301
  Transmission Date: 20120608
  Serious: No
  Sender: FDA-Public Use
  Company Number: None

PATIENT
  Sex: Female
  Weight: 77.1115 kg

DRUGS (2)
  1. OGESTREL 0.5/50-21 [Suspect]
     Indication: CONTRACEPTION
     Dosage: 28 DAY PACK
     Dates: start: 20091111, end: 20100331
  2. OGESTREL 0.5/50-21 [Suspect]
     Indication: CONTRACEPTION
     Dosage: 28 DAY PACK
     Dates: start: 20110221, end: 20120102

REACTIONS (1)
  - PREGNANCY ON ORAL CONTRACEPTIVE [None]
